FAERS Safety Report 4703079-2 (Version None)
Quarter: 2005Q2

REPORT INFORMATION
  Report Type: 
  Country: None (occurrence: None)
  Receive Date: 20050629
  Receipt Date: 20050204
  Transmission Date: 20051028
  Serious: Yes (Death, Other)
  Sender: FDA-Public Use
  Company Number: AU-BRISTOL-MYERS SQUIBB COMPANY-12874301

PATIENT
  Sex: Male

DRUGS (4)
  1. ABILIFY [Suspect]
  2. MORPHINE [Suspect]
  3. CHLORPROMAZINE HCL [Suspect]
  4. BENZODIAZEPINES [Suspect]

REACTIONS (2)
  - ACCIDENTAL OVERDOSE [None]
  - ASTHMA [None]
